FAERS Safety Report 6241479-2 (Version None)
Quarter: 2009Q2

REPORT INFORMATION
  Report Type: 
  Country: None (occurrence: None)
  Receive Date: 20090623
  Receipt Date: 20090608
  Transmission Date: 20091009
  Serious: Yes (Other)
  Sender: FDA-Public Use
  Company Number: US-ROCHE-638789

PATIENT
  Sex: Female

DRUGS (3)
  1. RIBAVIRIN [Suspect]
     Indication: HIV INFECTION
     Route: 065
  2. INTERFERON ALFA-2B [Suspect]
     Route: 065
  3. PLACEBO [Suspect]
     Route: 065

REACTIONS (20)
  - ANAEMIA [None]
  - ANXIETY [None]
  - BLOOD AMYLASE INCREASED [None]
  - CHILLS [None]
  - DEPRESSION [None]
  - DIARRHOEA [None]
  - FATIGUE [None]
  - HEADACHE [None]
  - HYPERBILIRUBINAEMIA [None]
  - HYPERTRIGLYCERIDAEMIA [None]
  - HYPOPHOSPHATAEMIA [None]
  - INSOMNIA [None]
  - LIPASE INCREASED [None]
  - MYALGIA [None]
  - NAUSEA [None]
  - NERVOUSNESS [None]
  - NEUTROPENIA [None]
  - PYREXIA [None]
  - RASH [None]
  - SUBSTANCE ABUSE [None]
